FAERS Safety Report 9106201 (Version 4)
Quarter: 2013Q2

REPORT INFORMATION
  Report Type: Spontaneous
  Country: US (occurrence: US)
  Receive Date: 20130220
  Receipt Date: 20130524
  Transmission Date: 20140414
  Serious: Yes (Hospitalization, Disabling, Other)
  Sender: FDA-Public Use
  Company Number: US-009507513-1302USA008754

PATIENT
  Sex: Female

DRUGS (4)
  1. FOSAMAX [Suspect]
     Indication: OSTEOPOROSIS PROPHYLAXIS
     Dosage: 70 MG, QW
     Route: 048
     Dates: start: 200212, end: 20100119
  2. FOSAMAX PLUS D [Suspect]
     Indication: OSTEOPOROSIS PROPHYLAXIS
     Dosage: 70 MG, QW
     Route: 048
     Dates: start: 200212, end: 20100119
  3. ONE-A-DAY WOMENS 50 PLUS ADVANTAGE [Concomitant]
     Dosage: UNK, QD
     Dates: start: 2003
  4. CORTICOSTEROIDS (UNSPECIFIED) [Concomitant]
     Indication: LUMBAR SPINAL STENOSIS
     Route: 008

REACTIONS (11)
  - Femur fracture [Recovered/Resolved]
  - Intramedullary rod insertion [Unknown]
  - Appendicectomy [Unknown]
  - Impaired healing [Unknown]
  - Pain [Unknown]
  - Tooth extraction [Unknown]
  - Depression [Unknown]
  - Blood potassium decreased [Unknown]
  - Breast cyst [Unknown]
  - Anxiety [Unknown]
  - Insomnia [Unknown]
